FAERS Safety Report 10529810 (Version 1)
Quarter: 2014Q4

REPORT INFORMATION
  Report Type: Spontaneous
  Country: US (occurrence: None)
  Receive Date: 20141020
  Receipt Date: 20141020
  Transmission Date: 20150528
  Serious: Yes (Life-Threatening, Other)
  Sender: FDA-Public Use
  Company Number: None

PATIENT
  Age: 58 Year
  Sex: Female
  Weight: 58.97 kg

DRUGS (10)
  1. LYRICA [Suspect]
     Active Substance: PREGABALIN
     Indication: NEURALGIA
     Dosage: 1 CAP X 3 DAILY, 3X 2 WEEKS
     Dates: start: 20140822, end: 20140904
  2. OXYCONTIN [Concomitant]
     Active Substance: OXYCODONE HYDROCHLORIDE
  3. PREDNISONE. [Concomitant]
     Active Substance: PREDNISONE
  4. BISOPROLOL [Concomitant]
     Active Substance: BISOPROLOL
  5. MORPHINE [Concomitant]
     Active Substance: MORPHINE
  6. VIT. B,50 [Concomitant]
  7. VALSARTAN. [Concomitant]
     Active Substance: VALSARTAN
  8. FISH OIL [Concomitant]
     Active Substance: FISH OIL
  9. ARAVA [Concomitant]
     Active Substance: LEFLUNOMIDE
  10. LIPITOR [Concomitant]
     Active Substance: ATORVASTATIN CALCIUM

REACTIONS (4)
  - Pharyngeal oedema [None]
  - Rash [None]
  - Depressed mood [None]
  - Dyspnoea [None]
